FAERS Safety Report 14825360 (Version 1)
Quarter: 2018Q2

REPORT INFORMATION
  Report Type: Report from Study
  Country: US (occurrence: US)
  Receive Date: 20180430
  Receipt Date: 20180430
  Transmission Date: 20180711
  Serious: Yes (Death, Other)
  Sender: FDA-Public Use
  Company Number: US-TAKEDA-2018TUS002202

PATIENT
  Sex: Female

DRUGS (1)
  1. PONATINIB [Suspect]
     Active Substance: PONATINIB
     Indication: ACUTE LYMPHOCYTIC LEUKAEMIA
     Dosage: 15 MG, QD
     Route: 048
     Dates: start: 20171024

REACTIONS (8)
  - Death [Fatal]
  - Initial insomnia [Unknown]
  - Asthenia [Unknown]
  - Neoplasm progression [Unknown]
  - Abdominal pain upper [Unknown]
  - Nausea [Unknown]
  - Blood glucose increased [Unknown]
  - Liver function test increased [Unknown]
